FAERS Safety Report 9642766 (Version 2)
Quarter: 2014Q1

REPORT INFORMATION
  Report Type: Spontaneous
  Country: SI (occurrence: SI)
  Receive Date: 20131024
  Receipt Date: 20140204
  Transmission Date: 20141002
  Serious: Yes (Other)
  Sender: FDA-Public Use
  Company Number: SI-JNJFOC-20131009686

PATIENT
  Age: 68 Year
  Sex: Male
  Weight: 72 kg

DRUGS (4)
  1. STELARA [Suspect]
     Indication: PSORIASIS
     Dosage: APPROXIMATE TOTAL NUMBER OF INJECTIONS PATIENT RECEIVED : 18
     Route: 058
     Dates: start: 20101103, end: 20130304
  2. KLIMACIN V [Concomitant]
     Route: 065
     Dates: start: 20130604, end: 20130614
  3. NEOTIGASON [Concomitant]
     Route: 065
     Dates: start: 20131016, end: 20131206
  4. TELFAST [Concomitant]
     Route: 065
     Dates: start: 20130801, end: 20130815

REACTIONS (1)
  - Actinomycosis [Recovering/Resolving]
